FAERS Safety Report 4751127-6 (Version None)
Quarter: 2005Q3

REPORT INFORMATION
  Report Type: 
  Country: None (occurrence: None)
  Receive Date: 20050822
  Receipt Date: 20050804
  Transmission Date: 20060218
  Serious: Yes (Other)
  Sender: FDA-Public Use
  Company Number: 2005BL004790

PATIENT
  Age: 58 Year
  Sex: Female

DRUGS (2)
  1. RITISERT (FLUOCINOLONE ACETONIDE INTRAVITREAL IMPLANT) 0.59 MG [Suspect]
     Indication: CHOROIDITIS
     Dosage: LEFT EYE
     Dates: start: 20010928, end: 20040525
  2. RITISERT (FLUOCINOLONE ACETONIDE INTRAVITREAL IMPLANT) 0.59 MG [Suspect]
     Indication: CHOROIDITIS
     Dosage: LEFT EYE
     Dates: start: 20040525

REACTIONS (2)
  - IMPLANT SITE REACTION [None]
  - VITREOUS DETACHMENT [None]
